FAERS Safety Report 5739729-1 (Version None)
Quarter: 2008Q2

REPORT INFORMATION
  Report Type: 
  Country: None (occurrence: None)
  Receive Date: 20080512
  Receipt Date: 20080512
  Transmission Date: 20081010
  Serious: Yes (Other)
  Sender: FDA-Public Use
  Company Number: None

PATIENT
  Sex: Male
  Weight: 81.2 kg

DRUGS (15)
  1. TAXOTERE [Suspect]
     Indication: PROSTATE CANCER
     Dosage: 154MGIVPB
     Route: 042
     Dates: start: 20080424
  2. BEVACIZUMAB 15MG/KG [Suspect]
     Indication: PROSTATE CANCER
     Dosage: 1305 MGIVBP
     Dates: start: 20080424
  3. RAD001 5MG [Suspect]
     Indication: PROSTATE CANCER
     Dosage: RAD001 5MG PO
     Route: 048
     Dates: start: 20080424, end: 20080506
  4. MMX [Concomitant]
  5. AMOXICILLIN [Concomitant]
  6. AVASTIN [Concomitant]
  7. CALCIUM [Concomitant]
  8. COMPAZINE [Concomitant]
  9. CURAMIN [Concomitant]
  10. DECADRON [Concomitant]
  11. LUPRON [Concomitant]
  12. TORPOL [Concomitant]
  13. TYLENOL [Concomitant]
  14. VASOTEC [Concomitant]
  15. VITAMIN D [Concomitant]

REACTIONS (5)
  - DIARRHOEA [None]
  - MUCOSAL INFLAMMATION [None]
  - NEUTROPENIA [None]
  - PYREXIA [None]
  - SYNCOPE VASOVAGAL [None]
